FAERS Safety Report 11012579 (Version 1)
Quarter: 2015Q2

REPORT INFORMATION
  Report Type: Spontaneous
  Country: US (occurrence: None)
  Receive Date: 20150410
  Receipt Date: 20150410
  Transmission Date: 20150821
  Serious: No
  Sender: FDA-Public Use
  Company Number: None

PATIENT
  Age: 62 Year
  Sex: Female
  Weight: 56.7 kg

DRUGS (2)
  1. VITAMINS [Concomitant]
     Active Substance: VITAMINS
  2. TAMIFLU [Suspect]
     Active Substance: OSELTAMIVIR PHOSPHATE
     Indication: INFLUENZA
     Dosage: 1 PILL  TWICE DAILY

REACTIONS (8)
  - Diarrhoea [None]
  - Dysgeusia [None]
  - Nausea [None]
  - Insomnia [None]
  - Dyspepsia [None]
  - Back pain [None]
  - Abdominal distension [None]
  - Abdominal pain upper [None]

NARRATIVE: CASE EVENT DATE: 20150304
